FAERS Safety Report 4636631-3 (Version None)
Quarter: 2005Q2

REPORT INFORMATION
  Report Type: 
  Country: None (occurrence: None)
  Receive Date: 20050414
  Receipt Date: 20050405
  Transmission Date: 20051028
  Serious: Yes (Hospitalization, Other)
  Sender: FDA-Public Use
  Company Number: 2002-02-2434

PATIENT
  Age: 50 Year
  Sex: Female

DRUGS (4)
  1. RIBAVIRIN [Suspect]
     Indication: HEPATITIS C
     Dosage: SEE IMAGE
     Route: 048
     Dates: start: 19990501, end: 19991101
  2. RIBAVIRIN [Suspect]
     Indication: HEPATITIS C
     Dosage: SEE IMAGE
     Route: 048
     Dates: start: 19991101, end: 20000201
  3. ROFERON-A [Suspect]
     Indication: HEPATITIS C
     Dosage: SEE IMAGE
     Route: 058
     Dates: start: 19990501, end: 19990601
  4. ROFERON-A [Suspect]
     Indication: HEPATITIS C
     Dosage: SEE IMAGE
     Route: 058
     Dates: start: 19990601, end: 20000201

REACTIONS (24)
  - ALOPECIA [None]
  - AMENORRHOEA [None]
  - ANOREXIA [None]
  - APHTHOUS STOMATITIS [None]
  - ASTHENIA [None]
  - AUTOIMMUNE DISORDER [None]
  - DEMYELINATION [None]
  - DEPRESSION [None]
  - DIARRHOEA [None]
  - DRUG DEPENDENCE [None]
  - DRY MOUTH [None]
  - FACIAL PALSY [None]
  - HEADACHE [None]
  - HYPOAESTHESIA [None]
  - MUSCULAR WEAKNESS [None]
  - MYALGIA [None]
  - NASAL DRYNESS [None]
  - PAIN IN EXTREMITY [None]
  - POLYNEUROPATHY [None]
  - PULMONARY FIBROSIS [None]
  - PULMONARY SARCOIDOSIS [None]
  - RENAL IMPAIRMENT [None]
  - VASCULITIS [None]
  - WEIGHT DECREASED [None]
